FAERS Safety Report 5187955-5 (Version None)
Quarter: 2006Q4

REPORT INFORMATION
  Report Type: 
  Country: None (occurrence: None)
  Receive Date: 20061221
  Receipt Date: 20061025
  Transmission Date: 20070319
  Serious: Yes (Death)
  Sender: FDA-Public Use
  Company Number: GBWYE330925OCT06

PATIENT
  Sex: Female
  Weight: 69.4 kg

DRUGS (6)
  1. ENBREL [Suspect]
     Indication: RHEUMATOID ARTHRITIS
     Route: 058
     Dates: start: 20040309, end: 20061023
  2. FOSAMAX [Concomitant]
     Dosage: UNKNOWN DOSE, WEEKLY
     Route: 048
  3. CO-PROXAMOL [Concomitant]
     Dosage: 2 TABLETS PRN
     Route: 048
  4. SURGAM [Concomitant]
     Dosage: 600MG DAILY
     Route: 048
  5. METHOTREXATE [Concomitant]
     Dosage: 10MG / WEEKLY
     Route: 048
  6. FOLIC ACID [Concomitant]
     Dosage: 10MG / WEEKLY
     Route: 048

REACTIONS (2)
  - INTRACRANIAL ANEURYSM [None]
  - SUBARACHNOID HAEMORRHAGE [None]
